FAERS Safety Report 6688189-5 (Version None)
Quarter: 2010Q2

REPORT INFORMATION
  Report Type: 
  Country: None (occurrence: None)
  Receive Date: 20100420
  Receipt Date: 20100409
  Transmission Date: 20101027
  Serious: Yes (Hospitalization)
  Sender: FDA-Public Use
  Company Number: FR-PFIZER INC-2010048253

PATIENT
  Age: 11 Year
  Sex: Male

DRUGS (5)
  1. ATARAX [Suspect]
     Dosage: 25 MG, 4X/DAY
     Route: 048
     Dates: start: 20040101
  2. TEGRETOL [Suspect]
     Dosage: 300 MG, 2X/DAY
     Route: 048
     Dates: start: 20100115, end: 20100312
  3. TEGRETOL [Suspect]
     Dosage: 200 MG, UNK
     Route: 048
  4. MINISINTROM [Suspect]
     Dosage: 1 MG, UNK
     Route: 048
     Dates: start: 20030101
  5. CLONIDINE HCL [Suspect]
     Dosage: 0.15 MG, UNK
     Route: 048
     Dates: start: 20030101

REACTIONS (1)
  - HYPERTHERMIA MALIGNANT [None]
